FAERS Safety Report 13086351 (Version 1)
Quarter: 2017Q1

REPORT INFORMATION
  Report Type: Spontaneous
  Country: US (occurrence: US)
  Receive Date: 20170104
  Receipt Date: 20170104
  Transmission Date: 20170428
  Serious: No
  Sender: FDA-Public Use
  Company Number: US-PERRIGO-16US015711

PATIENT
  Age: 67 Year
  Sex: Female
  Weight: 62.13 kg

DRUGS (2)
  1. VITAMINS NOS [Concomitant]
     Active Substance: VITAMINS
     Indication: SUPPLEMENTATION THERAPY
     Dosage: UNK
     Route: 048
  2. STIE-CORT [Suspect]
     Active Substance: HYDROCORTISONE
     Indication: DERMATITIS
     Dosage: SMALL AMOUNT, BID
     Route: 061
     Dates: start: 20160401, end: 20160414

REACTIONS (1)
  - Sneezing [Recovered/Resolved]

NARRATIVE: CASE EVENT DATE: 20160401
